FAERS Safety Report 12940449 (Version 6)
Quarter: 2017Q2

REPORT INFORMATION
  Report Type: Spontaneous
  Country: DE (occurrence: DE)
  Receive Date: 20161115
  Receipt Date: 20170606
  Transmission Date: 20170830
  Serious: Yes (Death, Hospitalization, Other)
  Sender: FDA-Public Use
  Company Number: DE-AMGEN-DEUSP2016156755

PATIENT
  Sex: Female

DRUGS (30)
  1. PEGFILGRASTIM [Suspect]
     Active Substance: PEGFILGRASTIM
     Dosage: 30 MIO IE/0,5ML, (1 IN 1 D)
     Route: 058
     Dates: start: 20161127
  2. TORASEMID [Concomitant]
     Active Substance: TORSEMIDE
     Dosage: 20 MG, QD
     Route: 048
  3. ENOXAPARIN SODIUM. [Concomitant]
     Active Substance: ENOXAPARIN SODIUM
     Indication: THROMBOSIS PROPHYLAXIS
     Dosage: 5 ML, QD (1 IN 1 D) FOR 23 DAYS
     Route: 058
     Dates: start: 20160907, end: 20160929
  4. COLECALCIFEROL [Concomitant]
     Active Substance: CHOLECALCIFEROL
     Dosage: 20000 IE, (ONLY FRIDAY)
     Route: 048
  5. VINCRISTINE [Suspect]
     Active Substance: VINCRISTINE
     Indication: B-CELL LYMPHOMA
     Dosage: 3.16 MG, Q2WK
     Route: 042
     Dates: start: 20160927, end: 20161124
  6. TORASEMID [Concomitant]
     Active Substance: TORSEMIDE
     Indication: CARDIAC FAILURE
     Dosage: 5 MG, BID FOR 41 DAYS
     Route: 048
     Dates: start: 20160901
  7. PIPERACILLIN [Concomitant]
     Active Substance: PIPERACILLIN
     Indication: OROPHARYNGEAL PAIN
     Dosage: 4 G, 3 IN 1 D
     Route: 042
     Dates: start: 20161019
  8. MACROGOL [Concomitant]
     Active Substance: POLYETHYLENE GLYCOLS
     Indication: CONSTIPATION
     Dosage: 1-1-0 BAGS
  9. RITUXIMAB [Suspect]
     Active Substance: RITUXIMAB
     Indication: B-CELL LYMPHOMA
     Dosage: 590 MG, Q2WK
     Route: 042
     Dates: start: 20160926
  10. DOXORUBICIN [Suspect]
     Active Substance: DOXORUBICIN
     Indication: B-CELL LYMPHOMA
     Dosage: 79 MG, Q2WK
     Route: 042
     Dates: start: 20160927, end: 20161124
  11. LENOGRASTIM [Suspect]
     Active Substance: LENOGRASTIM
     Indication: B-CELL LYMPHOMA
     Dosage: 34 MIO IE (ONCE)
     Route: 058
     Dates: start: 20161019
  12. PREDNISONE. [Suspect]
     Active Substance: PREDNISONE
     Indication: B-CELL LYMPHOMA
     Dosage: 100 MG, QD
     Route: 048
     Dates: start: 20160907, end: 20161128
  13. MIRTAZAPINE. [Concomitant]
     Active Substance: MIRTAZAPINE
     Indication: DEPRESSION
     Dosage: 15 MG, 1 IN 1 D
     Route: 048
     Dates: start: 20160901
  14. SULFAMETHOXAZOLE AND TRIMETHOPRIM [Concomitant]
     Active Substance: SULFAMETHOXAZOLE\TRIMETHOPRIM
     Dosage: 960 MG, 1-0-1, ONLY MONDAY+THURSDAY
     Route: 048
  15. RIVAROXABAN [Concomitant]
     Active Substance: RIVAROXABAN
     Indication: OEDEMA PERIPHERAL
     Dosage: 15 MG, 1 IN 1 D
     Route: 048
     Dates: start: 20161012
  16. PANTOPRAZOLE SODIUM. [Concomitant]
     Active Substance: PANTOPRAZOLE SODIUM
     Dosage: 40 MG, 1 IN 1 D
  17. FILGRASTIM [Suspect]
     Active Substance: FILGRASTIM
     Dosage: 30 MIO IE (1 IN 1 D)
     Route: 058
     Dates: start: 20161127
  18. ALLOPURINOL. [Concomitant]
     Active Substance: ALLOPURINOL
     Indication: PROPHYLAXIS
     Dosage: 300 MG, QD
     Route: 048
     Dates: start: 20160906
  19. ACICLOVIR [Concomitant]
     Active Substance: ACYCLOVIR
     Dosage: 800 MG, 2 IN 1 D
     Route: 048
  20. TAZOBACTAM [Concomitant]
     Active Substance: TAZOBACTAM
     Indication: OROPHARYNGEAL PAIN
     Dosage: 500 MG, TID
     Route: 042
     Dates: start: 20161019
  21. PEGFILGRASTIM [Suspect]
     Active Substance: PEGFILGRASTIM
     Indication: B-CELL LYMPHOMA
     Dosage: 6 MG, Q2WK
     Route: 058
     Dates: start: 20161014
  22. AMPICILLIN [Concomitant]
     Active Substance: AMPICILLIN
     Dosage: 750 MG, BID (2-0-2)
     Route: 048
     Dates: start: 20160913
  23. LEVOFLOXACIN. [Concomitant]
     Active Substance: LEVOFLOXACIN
     Dosage: 500 MG, 1 IN 3 D
     Route: 048
     Dates: start: 20161017, end: 20161019
  24. FILGRASTIM [Suspect]
     Active Substance: FILGRASTIM
     Indication: B-CELL LYMPHOMA
     Dosage: 30 MIO IE (1 IN 1 D)
     Route: 058
     Dates: start: 20161031, end: 20161107
  25. CYCLOPHOSPHAMIDE. [Suspect]
     Active Substance: CYCLOPHOSPHAMIDE
     Indication: B-CELL LYMPHOMA
     Dosage: 1185 MG, Q2WK
     Route: 042
     Dates: start: 20160927, end: 20161124
  26. DULOXETINA [Concomitant]
     Active Substance: DULOXETINE
     Indication: DEPRESSION
     Dosage: 30 MG, TID
     Route: 048
     Dates: start: 20160901
  27. ZOPICLONE [Concomitant]
     Active Substance: ZOPICLONE
     Indication: SLEEP DISORDER
     Dosage: 7.5 MG, 0-0-0-1
  28. METOPROLOL SUCCINATE. [Concomitant]
     Active Substance: METOPROLOL SUCCINATE
     Indication: HYPERTENSION
     Dosage: 47.5 MG, 2 IN 1 D
     Route: 048
     Dates: start: 20160901
  29. AMPHOTERICIN B. [Concomitant]
     Active Substance: AMPHOTERICIN B
     Dosage: 1 PIPETTE, UNK
     Route: 048
     Dates: start: 20161017
  30. METOCLOPRAMIDE. [Concomitant]
     Active Substance: METOCLOPRAMIDE
     Indication: NAUSEA
     Dosage: 10 MG, AS NECESSARY

REACTIONS (12)
  - Fatigue [Not Recovered/Not Resolved]
  - Spinal fracture [Not Recovered/Not Resolved]
  - Streptococcal infection [Recovered/Resolved]
  - Leukopenia [Recovered/Resolved]
  - Dehydration [Recovered/Resolved]
  - Constipation [Recovered/Resolved]
  - Dysphagia [Not Recovered/Not Resolved]
  - Hypokalaemia [Recovered/Resolved]
  - Thrombocytopenia [Recovered/Resolved]
  - Lung infection [Fatal]
  - Weight decreased [Not Recovered/Not Resolved]
  - Anaemia [Not Recovered/Not Resolved]

NARRATIVE: CASE EVENT DATE: 201610
